FAERS Safety Report 18088484 (Version 1)
Quarter: 2020Q3

REPORT INFORMATION
  Report Type: Report from Study
  Country: US (occurrence: US)
  Receive Date: 20200729
  Receipt Date: 20200729
  Transmission Date: 20201103
  Serious: Yes (Life-Threatening, Hospitalization, Disabling, Other)
  Sender: FDA-Public Use
  Company Number: US-TEVA-2020-US-1805393

PATIENT
  Age: 59 Year
  Sex: Male
  Weight: 82.6 kg

DRUGS (13)
  1. 5?FLUOROURACIL [Suspect]
     Active Substance: FLUOROURACIL
     Dosage: FREQUENCY: FORTNIGHTY
     Route: 042
     Dates: start: 20171113
  2. IRINOTECAN [Suspect]
     Active Substance: IRINOTECAN
     Indication: COLORECTAL CANCER METASTATIC
     Dosage: FREQUENCY: FORTNIGHTY
     Route: 042
     Dates: start: 20171113
  3. ATORVASTATIN CALCIUM. [Concomitant]
     Active Substance: ATORVASTATIN CALCIUM
  4. JANUVIA [Concomitant]
     Active Substance: SITAGLIPTIN PHOSPHATE
  5. LEUCOVORIN. [Suspect]
     Active Substance: LEUCOVORIN
     Indication: COLORECTAL CANCER METASTATIC
     Dosage: FREQUENCY: FORTNIGHTY
     Route: 042
     Dates: start: 20171113
  6. METFORMIN HYDROCHLORIDE. [Concomitant]
     Active Substance: METFORMIN HYDROCHLORIDE
  7. TRESIBA [Concomitant]
     Active Substance: INSULIN DEGLUDEC
  8. NEURONTIN [Concomitant]
     Active Substance: GABAPENTIN
  9. VALSARTAN. [Concomitant]
     Active Substance: VALSARTAN
  10. 5?FLUOROURACIL [Suspect]
     Active Substance: FLUOROURACIL
     Indication: COLORECTAL CANCER METASTATIC
     Dosage: FREQUENCY: FORTNIGHTY
     Route: 040
     Dates: start: 20171113
  11. MEDROL [Concomitant]
     Active Substance: METHYLPREDNISOLONE
  12. AUGMENTIN [Concomitant]
     Active Substance: AMOXICILLIN\CLAVULANATE POTASSIUM
     Dosage: 500?125 MG
  13. MACROBID [Concomitant]
     Active Substance: NITROFURANTOIN\NITROFURANTOIN MONOHYDRATE
     Dates: start: 20171108

REACTIONS (9)
  - Pneumonia pneumococcal [Recovered/Resolved]
  - Septic shock [Recovered/Resolved]
  - Respiratory failure [Recovered/Resolved]
  - Community acquired infection [Recovered/Resolved]
  - Hypotension [Recovered/Resolved]
  - Atrial fibrillation [Recovered/Resolved]
  - Pyrexia [Recovered/Resolved]
  - Dehydration [Recovered/Resolved]
  - Sepsis [Recovered/Resolved]

NARRATIVE: CASE EVENT DATE: 20180119
